FAERS Safety Report 14628484 (Version 1)
Quarter: 2018Q1

REPORT INFORMATION
  Report Type: Report from Study
  Country: MX (occurrence: MX)
  Receive Date: 20180312
  Receipt Date: 20180312
  Transmission Date: 20180509
  Serious: Yes (Other)
  Sender: FDA-Public Use
  Company Number: PHHY2018MX041178

PATIENT
  Sex: Male

DRUGS (7)
  1. RASILEZ [Suspect]
     Active Substance: ALISKIREN
     Indication: PRODUCT USED FOR UNKNOWN INDICATION
     Route: 065
  2. EXFORGE HCT [Suspect]
     Active Substance: AMLODIPINE BESYLATE\HYDROCHLOROTHIAZIDE\VALSARTAN
     Indication: HYPERTENSION
     Dosage: 1 DF (AMLODIPINE 5 MG, HYDROCHLOROTHIAZIDE 12.5 MG, VALSARTAN 160 MG), QD
     Route: 048
  3. BEZAFIBRATE [Concomitant]
     Active Substance: BEZAFIBRATE
     Indication: BLOOD CHOLESTEROL ABNORMAL
  4. ASPIRINE [Concomitant]
     Active Substance: ASPIRIN
     Indication: CEREBRAL DISORDER
     Dosage: 1 DF, QD
     Route: 065
  5. DUO-ANGLUCID [Concomitant]
     Indication: BLOOD GLUCOSE ABNORMAL
     Dosage: 1.5 DF (5/500 MG), Q12H (APPROXIMATELY 3 YEARS)
     Route: 048
  6. ASPITEC [Concomitant]
     Indication: OXYGEN CONSUMPTION DECREASED
     Dosage: 1 DF, QD
     Route: 065
  7. BEZAFIBRATE [Concomitant]
     Active Substance: BEZAFIBRATE
     Indication: BLOOD TRIGLYCERIDES ABNORMAL
     Dosage: 1 DF, QD
     Route: 065

REACTIONS (3)
  - Nephrolithiasis [Recovered/Resolved]
  - Gallbladder disorder [Recovered/Resolved]
  - Kidney infection [Recovered/Resolved]
